FAERS Safety Report 15759874 (Version 2)
Quarter: 2019Q1

REPORT INFORMATION
  Report Type: Spontaneous
  Country: US (occurrence: US)
  Receive Date: 20181226
  Receipt Date: 20190329
  Transmission Date: 20190417
  Serious: No
  Sender: FDA-Public Use
  Company Number: US-TEVA-2018-US-986137

PATIENT
  Sex: Male

DRUGS (2)
  1. BUSPIRONE HYDROCHLORIDE TEVA [Suspect]
     Active Substance: BUSPIRONE HYDROCHLORIDE
     Indication: ANXIETY
     Dosage: 2-3 DAYS
     Route: 065
     Dates: end: 20190108
  2. CLONAZEPAM. [Concomitant]
     Active Substance: CLONAZEPAM
     Route: 065

REACTIONS (6)
  - Urticaria [Unknown]
  - Drug ineffective [Unknown]
  - Product substitution issue [Unknown]
  - Contraindicated product administered [Unknown]
  - Anxiety [Unknown]
  - Dyspnoea [Unknown]
